FAERS Safety Report 9414888 (Version 1)
Quarter: 2013Q3

REPORT INFORMATION
  Report Type: Spontaneous
  Country: US (occurrence: US)
  Receive Date: 20130723
  Receipt Date: 20130723
  Transmission Date: 20140515
  Serious: Yes (Hospitalization, Other)
  Sender: FDA-Public Use
  Company Number: US-TEVA-420326USA

PATIENT
  Age: 55 Year
  Sex: Female

DRUGS (14)
  1. ACTIQ [Suspect]
     Indication: PAIN
     Route: 048
  2. METHADONE [Concomitant]
     Indication: PAIN
  3. TEMAZEPAM [Concomitant]
  4. TIZANIDINE [Concomitant]
  5. TOPAMAX [Concomitant]
  6. ZOFRAN [Concomitant]
     Indication: NAUSEA
  7. PHENERGAN [Concomitant]
     Indication: NAUSEA
  8. MOBIC [Concomitant]
     Indication: PAIN
  9. PROVIGIL [Concomitant]
  10. WELLBUTRIN XL [Concomitant]
  11. PROTONIX [Concomitant]
  12. ADVAIR [Concomitant]
  13. PROVENTIL [Concomitant]
  14. FLONASE [Concomitant]

REACTIONS (3)
  - Nausea [Recovered/Resolved]
  - Vomiting [Recovered/Resolved]
  - Off label use [Unknown]
